FAERS Safety Report 8321164-3 (Version None)
Quarter: 2012Q2

REPORT INFORMATION
  Report Type: 
  Country: None (occurrence: None)
  Receive Date: 20120430
  Receipt Date: 20120419
  Transmission Date: 20120825
  Serious: Yes (Other)
  Sender: FDA-Public Use
  Company Number: CA-JNJFOC-20120409406

PATIENT
  Sex: Female
  Weight: 74 kg

DRUGS (5)
  1. REMICADE [Suspect]
     Indication: RHEUMATOID ARTHRITIS
     Route: 042
     Dates: start: 20010530, end: 20120223
  2. MELOXICAM [Concomitant]
     Route: 065
  3. METHOTREXATE [Concomitant]
     Route: 065
  4. FOLIC ACID [Concomitant]
     Dosage: PER WEEK
     Route: 065
  5. PLAQUENIL [Concomitant]
     Route: 065

REACTIONS (1)
  - FOOT DEFORMITY [None]
